FAERS Safety Report 10196489 (Version 2)
Quarter: 2014Q2

REPORT INFORMATION
  Report Type: Spontaneous
  Country: US (occurrence: None)
  Receive Date: 20140522
  Receipt Date: 20140613
  Transmission Date: 20141212
  Serious: Yes (Other)
  Sender: FDA-Public Use
  Company Number: CIO14034092

PATIENT
  Sex: Male

DRUGS (1)
  1. NYQUIL COLD + FLU ALCOHOL 10% NIGHTTIME RELIEF, ORGINAL FLAVOR (ETHANOL 10%, DEXTROMETHORPHAN HYDROBROMIDE 30 MG, DOXYLAMINE SUCCINATE 12.5 MG, PARACETAMOL 650 MG) ORAL LIQUID, 30 ML [Suspect]
     Dosage: ONE CAPFUL, ORAL
     Route: 048
     Dates: start: 20140507, end: 20140507

REACTIONS (4)
  - Pharyngeal oedema [None]
  - Hypersensitivity [None]
  - Throat tightness [None]
  - Malaise [None]
